FAERS Safety Report 9321277 (Version 5)
Quarter: 2013Q4

REPORT INFORMATION
  Report Type: Spontaneous
  Country: JP (occurrence: JP)
  Receive Date: 20130531
  Receipt Date: 20131221
  Transmission Date: 20140711
  Serious: Yes (Disabling)
  Sender: FDA-Public Use
  Company Number: JP-AMGEN-JPNSP2013037409

PATIENT
  Age: 59 Year
  Sex: Male

DRUGS (8)
  1. RANMARK [Suspect]
     Indication: METASTASES TO BONE
     Dosage: 120 MG, Q4WK
     Route: 058
     Dates: start: 20121003, end: 20130123
  2. FEMARA [Concomitant]
     Route: 048
     Dates: start: 20120905
  3. LOXOPROFEN SODIUM [Concomitant]
     Dosage: 60 MG, TID
     Route: 048
     Dates: start: 20120125
  4. FURTULON [Concomitant]
     Route: 048
     Dates: start: 20120808
  5. OXYCONTIN [Concomitant]
     Route: 048
     Dates: start: 20120222
  6. MARZULENE                          /00317302/ [Concomitant]
     Route: 048
     Dates: start: 20120125
  7. MAGMITT [Concomitant]
     Route: 048
     Dates: start: 20120905
  8. ZOMETA [Concomitant]
     Indication: METASTASES TO BONE
     Route: 042
     Dates: start: 20120613, end: 20120808

REACTIONS (1)
  - Osteonecrosis of jaw [Recovering/Resolving]
